FAERS Safety Report 9686854 (Version 2)
Quarter: 2013Q4

REPORT INFORMATION
  Report Type: Spontaneous
  Country: CA (occurrence: CA)
  Receive Date: 20131113
  Receipt Date: 20131119
  Transmission Date: 20140711
  Serious: Yes (Hospitalization)
  Sender: FDA-Public Use
  Company Number: CA-TEVA-444117USA

PATIENT
  Age: 67 Year
  Sex: Female
  Weight: 54.93 kg

DRUGS (14)
  1. LEFLUNOMIDE [Suspect]
     Dates: start: 201002
  2. HYDROXYCHLOROQUINE [Concomitant]
     Dosage: 400 MILLIGRAM DAILY; MON-FRI BID
     Route: 048
     Dates: start: 201001
  3. BISOPROLOL [Concomitant]
     Dosage: 5 MILLIGRAM DAILY;
     Route: 048
  4. DABIGATRAN [Concomitant]
     Dosage: 110 MILLIGRAM DAILY;
     Route: 048
  5. DIGOXIN [Concomitant]
     Dosage: .125 MILLIGRAM DAILY;
     Route: 048
  6. FOLIC ACID [Concomitant]
     Dosage: QMWF
     Route: 048
  7. LASIX [Concomitant]
     Dosage: BID/D
     Route: 048
  8. LOSARTAN [Concomitant]
     Dosage: 25 MILLIGRAM DAILY;
     Route: 048
  9. PANTOLOC [Concomitant]
     Dosage: 40 MILLIGRAM DAILY;
     Route: 048
  10. ACTONEL DR [Concomitant]
     Dosage: Q TUESDAY
     Route: 048
  11. CRESTOR [Concomitant]
     Dosage: 10 MILLIGRAM DAILY;
     Route: 048
  12. SPIRONOLACTONE [Concomitant]
     Dosage: 12.5 MILLIGRAM DAILY;
     Route: 048
  13. IMOVANE [Concomitant]
     Dosage: Q HS PRN
     Route: 048
  14. TYLENOL W/CODEINE NO. 3 [Concomitant]
     Dosage: 1 TAB PO Q6HPRN
     Route: 048

REACTIONS (4)
  - Toxicity to various agents [Unknown]
  - Anaemia [Unknown]
  - Hypoglycaemia [Unknown]
  - Pancytopenia [Unknown]
